FAERS Safety Report 4924755-2 (Version None)
Quarter: 2006Q1

REPORT INFORMATION
  Report Type: 
  Country: None (occurrence: None)
  Receive Date: 20060222
  Receipt Date: 20060207
  Transmission Date: 20060701
  Serious: Yes (Other)
  Sender: FDA-Public Use
  Company Number: 13400

PATIENT
  Age: 59 Year
  Sex: Female

DRUGS (1)
  1. PACLITAXEL [Suspect]
     Indication: LUNG NEOPLASM MALIGNANT
     Dosage: 315 MG DAILY IV
     Route: 042
     Dates: start: 20060202

REACTIONS (4)
  - BACK PAIN [None]
  - CHEST DISCOMFORT [None]
  - DYSGEUSIA [None]
  - DYSPNOEA [None]
